FAERS Safety Report 24631409 (Version 1)
Quarter: 2024Q4

REPORT INFORMATION
  Report Type: Spontaneous
  Country: ES (occurrence: ES)
  Receive Date: 20241118
  Receipt Date: 20241118
  Transmission Date: 20250115
  Serious: Yes (Hospitalization)
  Sender: WAYLIS THERAPEUTICS
  Company Number: ES-WAYLIS-2024-ES-000122

PATIENT
  Age: 77 Year
  Sex: Female

DRUGS (1)
  1. RABEPRAZOLE SODIUM [Suspect]
     Active Substance: RABEPRAZOLE SODIUM
     Indication: Gastrooesophageal reflux disease
     Dosage: 20.0 MILLIGRAM(S) (20 MILLIGRAM(S), 1 IN 1 DAY); 1 COMPRESS PER DAY
     Route: 048
     Dates: start: 20130802, end: 20241022

REACTIONS (2)
  - Hypocalcaemia [Recovered/Resolved]
  - Hypomagnesaemia [Recovered/Resolved]

NARRATIVE: CASE EVENT DATE: 20241022
